FAERS Safety Report 6409169-0 (Version None)
Quarter: 2009Q4

REPORT INFORMATION
  Report Type: 
  Country: None (occurrence: None)
  Receive Date: 20091021
  Receipt Date: 20091013
  Transmission Date: 20100525
  Serious: Yes (Hospitalization)
  Sender: FDA-Public Use
  Company Number: PHHY2009IT44912

PATIENT
  Sex: Male

DRUGS (3)
  1. ZOMETA [Suspect]
     Indication: MULTIPLE MYELOMA
     Dosage: 4 MG, UNK
     Route: 042
     Dates: start: 20050201, end: 20050601
  2. AREDIA [Suspect]
     Indication: MULTIPLE MYELOMA
     Dosage: 90 MG, UNK
     Route: 042
     Dates: start: 20000601, end: 20020501
  3. ASPIRIN [Concomitant]

REACTIONS (4)
  - HAEMORRHAGE [None]
  - JAW FRACTURE [None]
  - OSTEONECROSIS [None]
  - THERAPEUTIC EMBOLISATION [None]
